FAERS Safety Report 23847119 (Version 1)
Quarter: 2024Q2

REPORT INFORMATION
  Report Type: Report from Study
  Country: CH (occurrence: CH)
  Receive Date: 20240513
  Receipt Date: 20240513
  Transmission Date: 20240716
  Serious: Yes (Hospitalization)
  Sender: FDA-Public Use
  Company Number: CH-ABBVIE-5562441

PATIENT
  Age: 77 Year
  Sex: Female

DRUGS (7)
  1. CARBIDOPA\LEVODOPA [Suspect]
     Active Substance: CARBIDOPA\LEVODOPA
     Indication: Parkinson^s disease
     Dosage: MD: 5 ML, CRD: 3.6 ML/H, CRN: 0 ML/H, ED: 2 ML?FREQUENCY TEXT: 16H THERAPY
     Route: 050
     Dates: start: 20231106, end: 20231107
  2. CARBIDOPA\LEVODOPA [Suspect]
     Active Substance: CARBIDOPA\LEVODOPA
     Dosage: MD: 2 ML, CRD: 3.6 ML/H, CRN: 0 ML/H, ED: 2 ML?FREQUENCY TEXT: 16H THERAPY
     Route: 050
     Dates: start: 20231103, end: 20231106
  3. CARBIDOPA\LEVODOPA [Suspect]
     Active Substance: CARBIDOPA\LEVODOPA
     Dosage: MD: 5 ML, CRD: 3.7 ML/H, CRN: 0 ML/H, ED: 2 ML?FREQUENCY TEXT: 16H THERAPY
     Route: 050
     Dates: start: 20231107, end: 20231114
  4. CARBIDOPA\LEVODOPA [Suspect]
     Active Substance: CARBIDOPA\LEVODOPA
     Dosage: MD: 2 ML, CRD: 2.5 ML/H, CRN: 0 ML/H, ED: 2 ML?FREQUENCY TEXT: 16H THERAPY
     Route: 050
     Dates: start: 20231031, end: 20231102
  5. CARBIDOPA\LEVODOPA [Suspect]
     Active Substance: CARBIDOPA\LEVODOPA
     Dosage: MD: 2 ML, CRD: 0.8 ML/H, CRN: 0 ML/H, ED: 1 ML?FREQUENCY TEXT: 16H THERAPY
     Route: 050
     Dates: start: 20231030, end: 20231031
  6. CARBIDOPA\LEVODOPA [Suspect]
     Active Substance: CARBIDOPA\LEVODOPA
     Dosage: MD: 2 ML, CRD: 3.5 ML/H, CRN: 0 ML/H, ED: 2 ML?FREQUENCY TEXT: 16H THERAPY
     Route: 050
     Dates: start: 20231102, end: 20231103
  7. CARBIDOPA\LEVODOPA [Suspect]
     Active Substance: CARBIDOPA\LEVODOPA
     Dosage: MD: 5 ML, CRD: 3.7 ML/H, CRN: 0 ML/H, ED: 2 ML?FREQUENCY TEXT: 16H THERAPY
     Route: 050
     Dates: start: 20231114

REACTIONS (9)
  - Radius fracture [Not Recovered/Not Resolved]
  - Cognitive disorder [Not Recovered/Not Resolved]
  - Motor dysfunction [Recovering/Resolving]
  - Head titubation [Not Recovered/Not Resolved]
  - Tremor [Recovering/Resolving]
  - Fall [Not Recovered/Not Resolved]
  - Memory impairment [Not Recovered/Not Resolved]
  - Depressed mood [Recovering/Resolving]
  - Disturbance in attention [Not Recovered/Not Resolved]

NARRATIVE: CASE EVENT DATE: 20231201
